FAERS Safety Report 7829609-X (Version None)
Quarter: 2011Q4

REPORT INFORMATION
  Report Type: 
  Country: None (occurrence: None)
  Receive Date: 20111021
  Receipt Date: 20111013
  Transmission Date: 20120403
  Serious: Yes (Disabling)
  Sender: FDA-Public Use
  Company Number: NL-AMGEN-NLDSP2011050897

PATIENT
  Age: 12 Year
  Sex: Female
  Weight: 50 kg

DRUGS (1)
  1. ENBREL [Suspect]
     Indication: PSORIASIS
     Dosage: 50 MG, WEEKLY
     Dates: start: 20110408

REACTIONS (1)
  - HAIR GROWTH ABNORMAL [None]
